FAERS Safety Report 13918955 (Version 2)
Quarter: 2017Q3

REPORT INFORMATION
  Report Type: Report from Study
  Country: None (occurrence: CH)
  Receive Date: 20170830
  Receipt Date: 20170919
  Transmission Date: 20171127
  Serious: Yes (Hospitalization)
  Sender: FDA-Public Use
  Company Number: CH-ABBVIE-17K-151-2084863-00

PATIENT
  Age: 70 Year
  Sex: Male

DRUGS (1)
  1. DUODOPA [Suspect]
     Active Substance: CARBIDOPA\LEVODOPA
     Indication: PARKINSON^S DISEASE
     Dosage: MORNING DOSE 13ML, CONTINUOUS RATE 3.2ML/H, EXTRA DOSE 1.8ML?16- THERAPY
     Route: 050
     Dates: start: 20120716

REACTIONS (3)
  - Cellulitis [Unknown]
  - Arthropod sting [Unknown]
  - Disorientation [Unknown]

NARRATIVE: CASE EVENT DATE: 201708
